FAERS Safety Report 4292848-1 (Version None)
Quarter: 2004Q1

REPORT INFORMATION
  Report Type: 
  Country: None (occurrence: None)
  Receive Date: 20040212
  Receipt Date: 20030715
  Transmission Date: 20041129
  Serious: No
  Sender: FDA-Public Use
  Company Number: US-GLAXOSMITHKLINE-A0416845A

PATIENT
  Age: 34 Year
  Sex: Male

DRUGS (2)
  1. PAXIL [Suspect]
     Route: 048
     Dates: start: 19980901
  2. MULTI-VITAMIN [Concomitant]

REACTIONS (2)
  - AGGRESSION [None]
  - AGITATION [None]
